FAERS Safety Report 8201279-0 (Version None)
Quarter: 2012Q1

REPORT INFORMATION
  Report Type: 
  Country: None (occurrence: None)
  Receive Date: 20120312
  Receipt Date: 20120308
  Transmission Date: 20120608
  Serious: Yes (Other)
  Sender: FDA-Public Use
  Company Number: PHHY2011DE46337

PATIENT
  Age: 77 Year
  Sex: Male

DRUGS (2)
  1. MULTAQ [Concomitant]
     Dates: start: 20101201, end: 20110701
  2. ZOMETA [Suspect]
     Indication: PROSTATE CANCER METASTATIC
     Dosage: 4 MG/ 5 ML, EVERY 4 WEEKS
     Route: 042
     Dates: start: 20100101, end: 20110801

REACTIONS (7)
  - HAEMOGLOBIN DECREASED [None]
  - ATRIAL FIBRILLATION [None]
  - RENAL FAILURE [None]
  - LYMPHOCYTE COUNT DECREASED [None]
  - BLOOD CHROMOGRANIN A INCREASED [None]
  - MONOCYTE COUNT INCREASED [None]
  - BLOOD CREATININE INCREASED [None]
